FAERS Safety Report 8216307-6 (Version None)
Quarter: 2012Q1

REPORT INFORMATION
  Report Type: 
  Country: None (occurrence: None)
  Receive Date: 20120316
  Receipt Date: 20120309
  Transmission Date: 20120608
  Serious: Yes (Hospitalization)
  Sender: FDA-Public Use
  Company Number: PHEH2012US005472

PATIENT
  Sex: Female

DRUGS (1)
  1. GILENYA [Suspect]
     Indication: VENTRICULAR EXTRASYSTOLES
     Dosage: 0.5 MG, QD
     Route: 048
     Dates: start: 20110622, end: 20120222

REACTIONS (5)
  - PALPITATIONS [None]
  - VENTRICULAR EXTRASYSTOLES [None]
  - DYSPNOEA [None]
  - DIZZINESS [None]
  - ELECTROCARDIOGRAM ST SEGMENT DEPRESSION [None]
